FAERS Safety Report 19261465 (Version 1)
Quarter: 2021Q2

REPORT INFORMATION
  Report Type: Spontaneous
  Country: US (occurrence: US)
  Receive Date: 20210515
  Receipt Date: 20210515
  Transmission Date: 20210717
  Serious: Yes (Hospitalization, Other)
  Sender: FDA-Public Use
  Company Number: US-AUROBINDO-AUR-APL-2021-019437

PATIENT
  Age: 14 Year
  Sex: Female

DRUGS (1)
  1. DIPHENHYDRAMINE TABLET [Suspect]
     Active Substance: DIPHENHYDRAMINE
     Indication: PRODUCT USED FOR UNKNOWN INDICATION
     Dosage: 100 DOSAGE FORM
     Route: 048

REACTIONS (5)
  - Agitation [Recovered/Resolved]
  - Tachycardia [Recovered/Resolved]
  - Anticholinergic syndrome [Recovered/Resolved]
  - Overdose [Unknown]
  - Hypertension [Recovered/Resolved]
